FAERS Safety Report 7773546-6 (Version None)
Quarter: 2011Q3

REPORT INFORMATION
  Report Type: 
  Country: None (occurrence: None)
  Receive Date: 20110922
  Receipt Date: 20110916
  Transmission Date: 20111222
  Serious: Yes (Hospitalization)
  Sender: FDA-Public Use
  Company Number: US-GENENTECH-322344

PATIENT
  Sex: Female

DRUGS (2)
  1. NUTROPIN AQ [Suspect]
     Indication: PRODUCT USED FOR UNKNOWN INDICATION
     Dosage: 0.8 MG, 5/WEEK
     Route: 058
     Dates: start: 20110624
  2. NUTROPIN AQ [Suspect]
     Dosage: 0.4 MG, 5/WEEK
     Route: 058
     Dates: end: 20110803

REACTIONS (4)
  - THROMBOSIS [None]
  - JOINT SWELLING [None]
  - PAIN [None]
  - ARTHRALGIA [None]
